FAERS Safety Report 6722410-X (Version None)
Quarter: 2010Q2

REPORT INFORMATION
  Report Type: 
  Country: None (occurrence: None)
  Receive Date: 20100512
  Receipt Date: 20100510
  Transmission Date: 20101027
  Serious: Yes (Hospitalization, Other)
  Sender: FDA-Public Use
  Company Number: US-B.I. PHARMACEUTICALS,INC./RIDGEFIELD-2010-BP-05298BP

PATIENT
  Sex: Female

DRUGS (6)
  1. SPIRIVA [Suspect]
     Indication: CHRONIC OBSTRUCTIVE PULMONARY DISEASE
     Dosage: 18 MCG
     Route: 055
     Dates: start: 20090101
  2. ADVAIR DISKUS 100/50 [Suspect]
     Indication: CHRONIC OBSTRUCTIVE PULMONARY DISEASE
     Route: 055
     Dates: start: 20090101
  3. CALCIUM + VITAMIN D [Concomitant]
     Indication: PROPHYLAXIS
  4. ATENOLOL [Concomitant]
     Indication: HYPERTENSION
  5. LOVASTATIN [Concomitant]
     Indication: BLOOD CHOLESTEROL INCREASED
  6. NORVASC [Concomitant]
     Indication: HYPERTENSION

REACTIONS (5)
  - DRY MOUTH [None]
  - DYSPHONIA [None]
  - NON-SMALL CELL LUNG CANCER [None]
  - ORAL CANDIDIASIS [None]
  - SMALL CELL CARCINOMA [None]
